FAERS Safety Report 6825615-2 (Version None)
Quarter: 2010Q3

REPORT INFORMATION
  Report Type: 
  Country: None (occurrence: None)
  Receive Date: 20100708
  Receipt Date: 20070324
  Transmission Date: 20110219
  Serious: Yes (Other)
  Sender: FDA-Public Use
  Company Number: US-PFIZER INC-2007003056

PATIENT
  Sex: Female
  Weight: 60.8 kg

DRUGS (2)
  1. CHANTIX [Suspect]
     Indication: EX-TOBACCO USER
     Dates: start: 20061225, end: 20061231
  2. BLACK COHOSH [Concomitant]

REACTIONS (11)
  - ANXIETY [None]
  - CHEST DISCOMFORT [None]
  - CRYING [None]
  - DIARRHOEA [None]
  - DYSPNOEA [None]
  - FATIGUE [None]
  - HYPOAESTHESIA [None]
  - LIVER FUNCTION TEST ABNORMAL [None]
  - SUICIDAL IDEATION [None]
  - THIRST [None]
  - TOBACCO USER [None]
